FAERS Safety Report 5739217-2 (Version None)
Quarter: 2008Q2

REPORT INFORMATION
  Report Type: 
  Country: None (occurrence: None)
  Receive Date: 20080515
  Receipt Date: 20080507
  Transmission Date: 20081010
  Serious: Yes (Other)
  Sender: FDA-Public Use
  Company Number: PHHY2008AU07299

PATIENT
  Age: 59 Year
  Sex: Female

DRUGS (4)
  1. FAMCICLOVIR [Suspect]
     Indication: HERPES ZOSTER
     Dosage: 75 MG/DAY
     Route: 048
     Dates: start: 20010721
  2. ACCUPRIL [Concomitant]
     Dosage: 20 MG/DAY
  3. MENOPREM [Concomitant]
     Indication: MENOPAUSAL SYMPTOMS
     Dosage: 1 DOSE/DAY
  4. NIFEDIPINE [Suspect]
     Indication: ESSENTIAL HYPERTENSION
     Dosage: 40 MG/DAY

REACTIONS (1)
  - ANGIOEDEMA [None]
